FAERS Safety Report 22018043 (Version 2)
Quarter: 2023Q1

REPORT INFORMATION
  Report Type: Spontaneous
  Country: PL (occurrence: PL)
  Receive Date: 20230221
  Receipt Date: 20230227
  Transmission Date: 20230417
  Serious: Yes (Death, Other)
  Sender: FDA-Public Use
  Company Number: PL-ROCHE-3282431

PATIENT
  Age: 74 Year
  Sex: Female

DRUGS (32)
  1. DOXORUBICIN HYDROCHLORIDE [Suspect]
     Active Substance: DOXORUBICIN HYDROCHLORIDE
     Indication: Diffuse large B-cell lymphoma
     Dosage: UNK UNK, CYCLIC, LAST CYCLE: 22/SEP/2021
     Route: 065
     Dates: end: 20210922
  2. RITUXIMAB [Suspect]
     Active Substance: RITUXIMAB
     Indication: Diffuse large B-cell lymphoma
     Dosage: CYCLE 1- 23/JAN/2023-24/JAN/2023
     Route: 042
     Dates: start: 20230123, end: 20230124
  3. SOLU-MEDROL [Suspect]
     Active Substance: METHYLPREDNISOLONE SODIUM SUCCINATE
     Dosage: UNK
  4. METHOTREXATE [Suspect]
     Active Substance: METHOTREXATE
     Indication: Diffuse large B-cell lymphoma
     Dosage: UNK
     Route: 037
     Dates: start: 20211012
  5. METHOTREXATE [Suspect]
     Active Substance: METHOTREXATE
     Dosage: UNK
     Route: 037
     Dates: start: 20211104
  6. METHOTREXATE [Suspect]
     Active Substance: METHOTREXATE
     Dosage: UNK
     Route: 037
     Dates: start: 20211125
  7. METHOTREXATE [Suspect]
     Active Substance: METHOTREXATE
     Dosage: UNK
     Route: 037
     Dates: start: 20211212
  8. ONDANSETRON [Suspect]
     Active Substance: ONDANSETRON
     Dosage: UNK
     Route: 065
  9. PREDNISONE [Suspect]
     Active Substance: PREDNISONE
     Indication: Diffuse large B-cell lymphoma
     Dosage: UNK, CYCLIC, LAST CYCLE: 22/SEP/2021
     Route: 065
     Dates: end: 20210922
  10. POLIVY [Suspect]
     Active Substance: POLATUZUMAB VEDOTIN-PIIQ
     Indication: Diffuse large B-cell lymphoma
     Dosage: LAST TREATMENT AT THIS DEPARTMENT BETWEEN 17JAN AND 26JAN2023
     Route: 042
     Dates: start: 20230123
  11. ACETAMINOPHEN [Suspect]
     Active Substance: ACETAMINOPHEN
     Dosage: UNK
     Route: 065
  12. CLEMASTINE [Suspect]
     Active Substance: CLEMASTINE
     Dosage: UNK
     Route: 065
  13. PEGFILGRASTIM [Suspect]
     Active Substance: PEGFILGRASTIM
     Dosage: 6 MG
     Route: 065
     Dates: start: 20230125
  14. BENDAMUSTINE [Suspect]
     Active Substance: BENDAMUSTINE
     Indication: Diffuse large B-cell lymphoma
     Dosage: CYCLE 1- 23/JAN/2023-24/JAN/2023
     Route: 042
     Dates: start: 20230123, end: 20230124
  15. VINCRISTINE SULFATE [Suspect]
     Active Substance: VINCRISTINE SULFATE
     Indication: Diffuse large B-cell lymphoma
     Dosage: UNK, CYCLIC
     Route: 065
     Dates: end: 20210922
  16. CYCLOPHOSPHAMIDE [Suspect]
     Active Substance: CYCLOPHOSPHAMIDE
     Indication: Diffuse large B-cell lymphoma
     Dosage: UNK, CYCLIC, LAST CYCLE: 22/SEP/2021
     Route: 065
     Dates: end: 20210922
  17. ACYCLOVIR [Concomitant]
     Active Substance: ACYCLOVIR
     Dosage: 400 MG
  18. BISEPTOL [Concomitant]
     Active Substance: SULFAMETHOXAZOLE\TRIMETHOPRIM
     Dosage: 480 MG, 0.33 WEEK
  19. DIETARY SUPPLEMENT [Concomitant]
     Active Substance: DIETARY SUPPLEMENT
     Dosage: UNK
  20. CONTROLOC [Concomitant]
     Active Substance: PANTOPRAZOLE SODIUM
     Dosage: 20 MG
  21. DEXAK [Concomitant]
     Dosage: 50 MG
  22. INSULIN HUMAN [Concomitant]
     Active Substance: INSULIN HUMAN
     Dosage: 6 U.-6 U.-6 U.
  23. VINCRISTINE SULFATE [Concomitant]
     Active Substance: VINCRISTINE SULFATE
     Indication: Diffuse large B-cell lymphoma
     Dosage: LAST CYCLE: 22/SEP/2021
     Route: 065
  24. FENTANYL [Concomitant]
     Active Substance: FENTANYL
     Indication: Diffuse large B-cell lymphoma
     Dosage: 50 UG, EVERY 72H
     Dates: start: 20230125
  25. TORSEMIDE [Concomitant]
     Active Substance: TORSEMIDE
     Indication: Diffuse large B-cell lymphoma
     Dosage: 10 MG
  26. HEPAREGEN [Concomitant]
     Dosage: UNK
  27. INSULIN HUMAN [Concomitant]
     Active Substance: INSULIN HUMAN
     Dosage: 8 U.
  28. ENOXAPARIN SODIUM [Concomitant]
     Active Substance: ENOXAPARIN SODIUM
     Dosage: 40 MG
  29. PREDNISONE [Concomitant]
     Active Substance: PREDNISONE
     Dosage: 20 MG
  30. OPIPRAMOL HYDROCHLORIDE [Concomitant]
     Active Substance: OPIPRAMOL HYDROCHLORIDE
     Dosage: UNK
  31. ALLOPURINOL [Concomitant]
     Active Substance: ALLOPURINOL
     Dosage: 300 MG
  32. LYRICA [Concomitant]
     Active Substance: PREGABALIN
     Dosage: 75 MG

REACTIONS (11)
  - Sepsis [Fatal]
  - Disease progression [Unknown]
  - General physical health deterioration [Unknown]
  - C-reactive protein increased [Unknown]
  - Procalcitonin increased [Unknown]
  - Tachycardia [Unknown]
  - Speech disorder [Unknown]
  - Hypercreatininaemia [Unknown]
  - Confusional state [Unknown]
  - Somnolence [Unknown]
  - Pyrexia [Unknown]

NARRATIVE: CASE EVENT DATE: 20230109
